FAERS Safety Report 18325650 (Version 1)
Quarter: 2020Q3

REPORT INFORMATION
  Report Type: Report from Study
  Country: CA (occurrence: CA)
  Receive Date: 20200929
  Receipt Date: 20200929
  Transmission Date: 20201103
  Serious: Yes (Other)
  Sender: FDA-Public Use
  Company Number: CA-HLS-202001541

PATIENT
  Sex: Male

DRUGS (1)
  1. CLOZARIL [Suspect]
     Active Substance: CLOZAPINE
     Indication: PRODUCT USED FOR UNKNOWN INDICATION
     Dosage: DECREASING CLOZAPINE DOSAGE AND WILL NOT KEEP PATIENT ON CLOZAPINE IN LONG TERM
     Route: 048
     Dates: start: 20190801

REACTIONS (1)
  - Tourette^s disorder [Unknown]
